FAERS Safety Report 7971079-5 (Version None)
Quarter: 2011Q4

REPORT INFORMATION
  Report Type: 
  Country: None (occurrence: None)
  Receive Date: 20111212
  Receipt Date: 20111212
  Transmission Date: 20120403
  Serious: Yes (Life-Threatening)
  Sender: FDA-Public Use
  Company Number: None

PATIENT
  Sex: Male
  Weight: 85.275 kg

DRUGS (1)
  1. JANUMET [Suspect]
     Indication: TYPE 2 DIABETES MELLITUS
     Dosage: 1 TABLET
     Route: 048
     Dates: start: 20110603, end: 20110616

REACTIONS (5)
  - DRUG HYPERSENSITIVITY [None]
  - PAIN [None]
  - MIDDLE INSOMNIA [None]
  - DRUG INEFFECTIVE [None]
  - FEAR [None]
